FAERS Safety Report 14022803 (Version 5)
Quarter: 2020Q1

REPORT INFORMATION
  Report Type: Report from Study
  Country: JP (occurrence: JP)
  Receive Date: 20170929
  Receipt Date: 20200107
  Transmission Date: 20200409
  Serious: Yes (Other)
  Sender: FDA-Public Use
  Company Number: JP-INCYTE CORPORATION-2017IN008131

PATIENT

DRUGS (3)
  1. JAKAVI [Suspect]
     Active Substance: RUXOLITINIB
     Indication: POLYCYTHAEMIA VERA
     Dosage: 5 MG, BID
     Route: 048
     Dates: start: 20160802
  2. JAKAVI [Suspect]
     Active Substance: RUXOLITINIB
     Dosage: 15MG(IN TWO DIVIDED DOSES)BID
     Route: 048
     Dates: start: 20181002, end: 20190423
  3. JAKAVI [Suspect]
     Active Substance: RUXOLITINIB
     Dosage: 5 MG, BID
     Route: 048
     Dates: start: 20190424

REACTIONS (7)
  - Glomerular filtration rate decreased [Not Recovered/Not Resolved]
  - Chronic kidney disease [Not Recovered/Not Resolved]
  - Aspartate aminotransferase increased [Recovered/Resolved]
  - White blood cell count increased [Unknown]
  - Blood creatinine increased [Not Recovered/Not Resolved]
  - Red blood cell count increased [Unknown]
  - Blood lactate dehydrogenase increased [Recovering/Resolving]

NARRATIVE: CASE EVENT DATE: 20160823
